FAERS Safety Report 6029865-7 (Version None)
Quarter: 2009Q1

REPORT INFORMATION
  Report Type: 
  Country: None (occurrence: None)
  Receive Date: 20090107
  Receipt Date: 20090106
  Transmission Date: 20090719
  Serious: Yes (Hospitalization)
  Sender: FDA-Public Use
  Company Number: US-ASTRAZENECA-2009UW00310

PATIENT
  Age: 14148 Day
  Sex: Female
  Weight: 81.5 kg

DRUGS (3)
  1. SEROQUEL [Suspect]
     Route: 048
     Dates: start: 20050106
  2. RITALIN [Concomitant]
  3. MOTRIN [Concomitant]

REACTIONS (3)
  - DEHYDRATION [None]
  - GASTROENTERITIS VIRAL [None]
  - HEPATOMEGALY [None]
